FAERS Safety Report 7965460-8 (Version None)
Quarter: 2011Q4

REPORT INFORMATION
  Report Type: 
  Country: None (occurrence: None)
  Receive Date: 20111206
  Receipt Date: 20111206
  Transmission Date: 20120403
  Serious: Yes (Hospitalization)
  Sender: FDA-Public Use
  Company Number: None

PATIENT
  Sex: Female
  Weight: 55.91 kg

DRUGS (2)
  1. TAXOL [Suspect]
     Dosage: 252 MG
     Dates: end: 20111019
  2. CARBOPLATIN [Suspect]
     Dosage: MG
     Dates: end: 20111012

REACTIONS (5)
  - BLOOD CULTURE POSITIVE [None]
  - ABDOMINAL PAIN LOWER [None]
  - PSEUDOMONAS INFECTION [None]
  - NEUTROPENIA [None]
  - DEVICE RELATED INFECTION [None]
